FAERS Safety Report 6923742-2 (Version None)
Quarter: 2010Q3

REPORT INFORMATION
  Report Type: 
  Country: None (occurrence: None)
  Receive Date: 20100813
  Receipt Date: 20100719
  Transmission Date: 20110219
  Serious: Yes (Other)
  Sender: FDA-Public Use
  Company Number: US-GENZYME-HECT-1000090

PATIENT
  Sex: Male

DRUGS (3)
  1. HECTOROL [Suspect]
     Indication: HYPERPARATHYROIDISM SECONDARY
     Dosage: 1.0 MCG, QD
     Route: 048
     Dates: start: 20100615, end: 20100708
  2. HECTOROL [Suspect]
     Dosage: 1.0 MCG, TIW
     Route: 048
     Dates: start: 20100202, end: 20100615
  3. HECTOROL [Suspect]
     Dosage: 0.5 MCG, TIW
     Route: 048
     Dates: start: 20091006, end: 20100202

REACTIONS (2)
  - BLOOD PARATHYROID HORMONE INCREASED [None]
  - DRUG HYPERSENSITIVITY [None]
